FAERS Safety Report 9726038 (Version 3)
Quarter: 2014Q2

REPORT INFORMATION
  Report Type: Spontaneous
  Country: JP (occurrence: None)
  Receive Date: 20131129
  Receipt Date: 20140610
  Transmission Date: 20141212
  Serious: Yes (Death, Hospitalization)
  Sender: FDA-Public Use
  Company Number: 2013P1021506

PATIENT
  Age: 74 Year
  Sex: Male

DRUGS (1)
  1. RILUTEK [Suspect]
     Route: 048
     Dates: end: 2010

REACTIONS (1)
  - Interstitial lung disease [None]
